FAERS Safety Report 18969989 (Version 1)
Quarter: 2021Q1

REPORT INFORMATION
  Report Type: Report from Study
  Country: US (occurrence: US)
  Receive Date: 20210304
  Receipt Date: 20210304
  Transmission Date: 20210420
  Serious: Yes (Hospitalization)
  Sender: FDA-Public Use
  Company Number: US-JNJFOC-20210205936

PATIENT
  Age: 82 Year
  Sex: Female
  Weight: 79.5 kg

DRUGS (3)
  1. MACITENTAN [Suspect]
     Active Substance: MACITENTAN
     Indication: PULMONARY ARTERIAL HYPERTENSION
     Route: 048
  2. ADCIRCA [Concomitant]
     Active Substance: TADALAFIL
  3. TREPROSTINIL. [Concomitant]
     Active Substance: TREPROSTINIL

REACTIONS (5)
  - Muscular weakness [Unknown]
  - Diarrhoea [Unknown]
  - Nervous system disorder [Unknown]
  - Movement disorder [Unknown]
  - Dyskinesia [Unknown]

NARRATIVE: CASE EVENT DATE: 20210125
